FAERS Safety Report 14561429 (Version 1)
Quarter: 2018Q1

REPORT INFORMATION
  Report Type: Spontaneous
  Country: US (occurrence: US)
  Receive Date: 20180222
  Receipt Date: 20180222
  Transmission Date: 20180509
  Serious: No
  Sender: FDA-Public Use
  Company Number: US-PFIZER INC-2018074739

PATIENT
  Sex: Male

DRUGS (2)
  1. HYDROCORTISONE. [Suspect]
     Active Substance: HYDROCORTISONE
     Dosage: UNK
  2. THYROXINE [Suspect]
     Active Substance: LEVOTHYROXINE
     Dosage: UNK

REACTIONS (2)
  - Treatment noncompliance [Unknown]
  - Drug dose omission [Unknown]
